FAERS Safety Report 4929286-1 (Version None)
Quarter: 2006Q1

REPORT INFORMATION
  Report Type: 
  Country: None (occurrence: None)
  Receive Date: 20060223
  Receipt Date: 20060209
  Transmission Date: 20060701
  Serious: Yes (Hospitalization)
  Sender: FDA-Public Use
  Company Number: SUS1-2006-00127

PATIENT
  Age: 56 Year
  Sex: Female
  Weight: 63.5 kg

DRUGS (10)
  1. PENTASA [Suspect]
     Indication: CROHN'S DISEASE
     Dosage: 250 MG, 2 CAPS 4X/D, UNK
     Dates: start: 20060101, end: 20060201
  2. SEREVENT [Concomitant]
  3. ACCOLATE [Concomitant]
  4. LASIX    /00032601/ (FUROSEMIDE) [Concomitant]
  5. LEVOTHYROXINE SODIUM [Concomitant]
  6. CHLOR K [Concomitant]
  7. PREVACID [Concomitant]
  8. PREMARIN          /00073001/(ESTROGENS CONJUGATED) [Concomitant]
  9. CALCIUM(CALCIUM) [Concomitant]
  10. ASACOL [Concomitant]

REACTIONS (6)
  - ANAEMIA [None]
  - ANAL FISSURE [None]
  - GENERALISED OEDEMA [None]
  - PAIN IN EXTREMITY [None]
  - RECTAL HAEMORRHAGE [None]
  - WEIGHT INCREASED [None]
